FAERS Safety Report 25125638 (Version 11)
Quarter: 2025Q3

REPORT INFORMATION
  Report Type: Spontaneous
  Country: EU (occurrence: EU)
  Receive Date: 20250326
  Receipt Date: 20250718
  Transmission Date: 20251021
  Serious: Yes (Hospitalization, Other)
  Sender: MYLAN
  Company Number: EU-MYLANLABS-2025M1025354

PATIENT
  Age: 4 Year
  Sex: Female
  Weight: 21 kg

DRUGS (36)
  1. PHENYTOIN SODIUM [Suspect]
     Active Substance: PHENYTOIN SODIUM
     Indication: Epilepsy
     Dosage: 78 MILLIGRAM, BID (EVERY 12 HOURS)
     Route: 048
     Dates: start: 20230505
  2. PHENYTOIN SODIUM [Suspect]
     Active Substance: PHENYTOIN SODIUM
     Dosage: 78 MILLIGRAM, BID (EVERY 12 HOURS)
     Dates: start: 20230505
  3. PHENYTOIN SODIUM [Suspect]
     Active Substance: PHENYTOIN SODIUM
     Dosage: 78 MILLIGRAM, BID (EVERY 12 HOURS)
     Dates: start: 20230505
  4. PHENYTOIN SODIUM [Suspect]
     Active Substance: PHENYTOIN SODIUM
     Dosage: 78 MILLIGRAM, BID (EVERY 12 HOURS)
     Route: 048
     Dates: start: 20230505
  5. PHENYTOIN SODIUM [Suspect]
     Active Substance: PHENYTOIN SODIUM
     Dosage: 12 MILLILITER, BID (2 TIMES PER DAY)
     Route: 065
     Dates: start: 202503
  6. PHENYTOIN SODIUM [Suspect]
     Active Substance: PHENYTOIN SODIUM
     Dosage: 12 MILLILITER, BID (2 TIMES PER DAY)
     Dates: start: 202503
  7. PHENYTOIN SODIUM [Suspect]
     Active Substance: PHENYTOIN SODIUM
     Dosage: 12 MILLILITER, BID (2 TIMES PER DAY)
     Dates: start: 202503
  8. PHENYTOIN SODIUM [Suspect]
     Active Substance: PHENYTOIN SODIUM
     Dosage: 12 MILLILITER, BID (2 TIMES PER DAY)
     Route: 065
     Dates: start: 202503
  9. PHENYTOIN SODIUM [Suspect]
     Active Substance: PHENYTOIN SODIUM
     Route: 065
  10. PHENYTOIN SODIUM [Suspect]
     Active Substance: PHENYTOIN SODIUM
     Route: 065
  11. PHENYTOIN SODIUM [Suspect]
     Active Substance: PHENYTOIN SODIUM
  12. PHENYTOIN SODIUM [Suspect]
     Active Substance: PHENYTOIN SODIUM
  13. CARBAMAZEPINE [Suspect]
     Active Substance: CARBAMAZEPINE
     Indication: Product used for unknown indication
  14. CARBAMAZEPINE [Suspect]
     Active Substance: CARBAMAZEPINE
     Route: 065
  15. CARBAMAZEPINE [Suspect]
     Active Substance: CARBAMAZEPINE
     Route: 065
  16. CARBAMAZEPINE [Suspect]
     Active Substance: CARBAMAZEPINE
  17. ZONISAMIDE [Concomitant]
     Active Substance: ZONISAMIDE
     Indication: Product used for unknown indication
  18. ZONISAMIDE [Concomitant]
     Active Substance: ZONISAMIDE
  19. ZONISAMIDE [Concomitant]
     Active Substance: ZONISAMIDE
     Route: 065
  20. ZONISAMIDE [Concomitant]
     Active Substance: ZONISAMIDE
     Route: 065
  21. ZONISAMIDE [Concomitant]
     Active Substance: ZONISAMIDE
  22. ZONISAMIDE [Concomitant]
     Active Substance: ZONISAMIDE
  23. ZONISAMIDE [Concomitant]
     Active Substance: ZONISAMIDE
     Route: 065
  24. ZONISAMIDE [Concomitant]
     Active Substance: ZONISAMIDE
     Route: 065
  25. PHENOBARBITAL [Concomitant]
     Active Substance: PHENOBARBITAL
     Indication: Product used for unknown indication
     Dosage: 30 MILLIGRAM, QD (AT NIGHT)
  26. PHENOBARBITAL [Concomitant]
     Active Substance: PHENOBARBITAL
     Dosage: 30 MILLIGRAM, QD (AT NIGHT)
  27. PHENOBARBITAL [Concomitant]
     Active Substance: PHENOBARBITAL
     Dosage: 30 MILLIGRAM, QD (AT NIGHT)
     Route: 065
  28. PHENOBARBITAL [Concomitant]
     Active Substance: PHENOBARBITAL
     Dosage: 30 MILLIGRAM, QD (AT NIGHT)
     Route: 065
  29. PHENOBARBITAL [Concomitant]
     Active Substance: PHENOBARBITAL
     Dosage: 15 MILLIGRAM, QD (IN THE MORNING)
  30. PHENOBARBITAL [Concomitant]
     Active Substance: PHENOBARBITAL
     Dosage: 15 MILLIGRAM, QD (IN THE MORNING)
  31. PHENOBARBITAL [Concomitant]
     Active Substance: PHENOBARBITAL
     Dosage: 15 MILLIGRAM, QD (IN THE MORNING)
     Route: 065
  32. PHENOBARBITAL [Concomitant]
     Active Substance: PHENOBARBITAL
     Dosage: 15 MILLIGRAM, QD (IN THE MORNING)
     Route: 065
  33. ACYCLOVIR [Concomitant]
     Active Substance: ACYCLOVIR
     Indication: Product used for unknown indication
  34. ACYCLOVIR [Concomitant]
     Active Substance: ACYCLOVIR
     Route: 065
  35. ACYCLOVIR [Concomitant]
     Active Substance: ACYCLOVIR
     Route: 065
  36. ACYCLOVIR [Concomitant]
     Active Substance: ACYCLOVIR

REACTIONS (15)
  - Fall [Unknown]
  - Gait disturbance [Unknown]
  - Unresponsive to stimuli [Unknown]
  - Eye disorder [Unknown]
  - Drug level increased [Unknown]
  - Toxicity to various agents [Unknown]
  - Ataxia [Unknown]
  - Accidental overdose [Unknown]
  - Suspected product quality issue [Unknown]
  - Product colour issue [Unknown]
  - Muscular weakness [Unknown]
  - Skin reaction [Unknown]
  - Product physical issue [Unknown]
  - Product storage error [Unknown]
  - Wrong technique in product usage process [Unknown]

NARRATIVE: CASE EVENT DATE: 20250301
